FAERS Safety Report 24782665 (Version 1)
Quarter: 2024Q4

REPORT INFORMATION
  Report Type: Spontaneous
  Country: ES (occurrence: ES)
  Receive Date: 20241227
  Receipt Date: 20241227
  Transmission Date: 20250115
  Serious: Yes (Hospitalization)
  Sender: TEVA
  Company Number: None

PATIENT
  Age: 57 Year
  Sex: Female

DRUGS (4)
  1. GABAPENTIN [Suspect]
     Active Substance: GABAPENTIN
     Indication: Back pain
     Dosage: 300MG AT BREAKFAST AND LUNCH, GABAPENTIN (2641A)
     Route: 048
     Dates: start: 20241120, end: 20241130
  2. PREGABALIN [Concomitant]
     Active Substance: PREGABALIN
     Indication: Back pain
     Dosage: PREGABALIN (3897A)
     Route: 048
     Dates: start: 20240524, end: 20241120
  3. METAMIZOLE [Concomitant]
     Active Substance: METAMIZOLE
     Indication: Back pain
     Dosage: METAMIZOLE (111A)
     Route: 048
     Dates: start: 20240308, end: 20241130
  4. ZALDIAR [Concomitant]
     Active Substance: ACETAMINOPHEN\TRAMADOL HYDROCHLORIDE
     Indication: Back pain
     Dosage: 2-2-2, 37.5 MG/325 MG ,100 TABLETS
     Route: 048
     Dates: start: 20230619, end: 20241130

REACTIONS (1)
  - Psychotic disorder [Recovered/Resolved]

NARRATIVE: CASE EVENT DATE: 20241129
